FAERS Safety Report 9667675 (Version 2)
Quarter: 2013Q4

REPORT INFORMATION
  Report Type: Spontaneous
  Country: US (occurrence: US)
  Receive Date: 20131101
  Receipt Date: 20131101
  Transmission Date: 20140711
  Serious: No
  Sender: FDA-Public Use
  Company Number: US-ORACLE-2011S1000096

PATIENT
  Sex: 0

DRUGS (2)
  1. KRYSTEXXA INJECTION [Suspect]
     Indication: GOUT
  2. KRYSTEXXA INJECTION [Suspect]
     Indication: GOUT

REACTIONS (5)
  - Fatigue [Unknown]
  - Pyrexia [Unknown]
  - Cold sweat [Unknown]
  - Gout [Unknown]
  - Drug ineffective [Unknown]
